FAERS Safety Report 9307440 (Version 4)
Quarter: 2013Q3

REPORT INFORMATION
  Report Type: Spontaneous
  Country: US (occurrence: US)
  Receive Date: 20130524
  Receipt Date: 20130712
  Transmission Date: 20140515
  Serious: Yes (Life-Threatening, Hospitalization)
  Sender: FDA-Public Use
  Company Number: US-JNJFOC-20130508963

PATIENT
  Age: 96 Year
  Sex: Female
  Weight: 43.09 kg

DRUGS (3)
  1. TYLENOL ARTHRITIS PAIN ER [Suspect]
     Indication: SPINAL PAIN
     Dosage: ONE TO TWO
     Route: 048
     Dates: start: 201302
  2. TYLENOL ARTHRITIS PAIN ER [Suspect]
     Indication: BACK PAIN
     Dosage: ONE TO TWO
     Route: 048
     Dates: start: 201302
  3. ASPIRIN [Concomitant]
     Route: 065

REACTIONS (2)
  - Myocardial infarction [Recovered/Resolved with Sequelae]
  - Fall [Recovered/Resolved with Sequelae]
